FAERS Safety Report 4508413-4 (Version None)
Quarter: 2004Q4

REPORT INFORMATION
  Report Type: 
  Country: None (occurrence: None)
  Receive Date: 20041123
  Receipt Date: 20040127
  Transmission Date: 20050328
  Serious: No
  Sender: FDA-Public Use
  Company Number: US-GLAXOSMITHKLINE-A0496507A

PATIENT
  Age: 31 Year
  Sex: Female

DRUGS (2)
  1. WELLBUTRIN SR [Suspect]
     Indication: ANXIETY
     Dosage: 150MG TWICE PER DAY
     Route: 048
     Dates: start: 20040116, end: 20040125
  2. ALBUTEROL [Concomitant]

REACTIONS (2)
  - CHEST DISCOMFORT [None]
  - PANIC REACTION [None]
